FAERS Safety Report 9376917 (Version 2)
Quarter: 2013Q4

REPORT INFORMATION
  Report Type: Report from Study
  Country: MX (occurrence: MX)
  Receive Date: 20130701
  Receipt Date: 20131204
  Transmission Date: 20140711
  Serious: Yes (Other)
  Sender: FDA-Public Use
  Company Number: PHHY2013MX067083

PATIENT
  Sex: Female

DRUGS (4)
  1. STALEVO [Suspect]
     Indication: PARKINSON^S DISEASE
     Dosage: 1 DF, (200/100/25 MG)
     Route: 048
  2. STALEVO [Suspect]
     Dosage: 6 DF, DAILY (200/150/37.5 MG)
     Route: 048
     Dates: start: 201302
  3. AMARYL [Concomitant]
     Dosage: 1 UKN, DAILY
  4. KINESTREL [Concomitant]
     Indication: PARKINSON^S DISEASE
     Dosage: 2 UKN, DAILY
     Dates: start: 201302

REACTIONS (8)
  - Cardiac disorder [Unknown]
  - Fear [Not Recovered/Not Resolved]
  - Nervousness [Not Recovered/Not Resolved]
  - Dysphonia [Not Recovered/Not Resolved]
  - Fear of falling [Not Recovered/Not Resolved]
  - Hypertension [Not Recovered/Not Resolved]
  - Tremor [Unknown]
  - Musculoskeletal stiffness [Not Recovered/Not Resolved]
